FAERS Safety Report 8066730-8 (Version None)
Quarter: 2012Q1

REPORT INFORMATION
  Report Type: 
  Country: None (occurrence: None)
  Receive Date: 20120117
  Receipt Date: 20111230
  Transmission Date: 20120608
  Serious: Yes (Hospitalization)
  Sender: FDA-Public Use
  Company Number: 1000024967

PATIENT
  Age: 78 Year
  Sex: Male

DRUGS (8)
  1. CITALOPRAM HYDROBROMIDE [Suspect]
     Dosage: 0.5 DF (0.5 DOSAGE FORMS, 1 IN 1 D), ORAL
     Route: 048
  2. ARICEPT [Suspect]
     Indication: DEMENTIA ALZHEIMER'S TYPE
     Dosage: 1 DF (1 DOSAGE FORMS, 1 IN 1 D), ORAL
     Route: 048
  3. TRANDOLAPRIL [Concomitant]
  4. BI TILDEM (DILTIAZEM HYDROCHLORIDE) [Concomitant]
  5. ACTONEL [Suspect]
     Dosage: 1 DF (1 DOSAGE FORMS, 1 IN 1 D), ORAL
     Route: 048
  6. ATORVASTATIN CALCIUM [Concomitant]
  7. PREVISCAN (FLUINDIONE) (20 MILLIGRAM, TABLETS) [Suspect]
     Indication: ATRIAL FIBRILLATION
     Dosage: 0.625 DF (1.25 DOSAGE FORMS, 1 IN 2 D), ORAL
     Route: 048
     Dates: end: 20110903
  8. DENSICAL D3 (LEKOVIT CA) (TABLETS) [Concomitant]

REACTIONS (14)
  - MALAISE [None]
  - HELICOBACTER GASTRITIS [None]
  - INTERNATIONAL NORMALISED RATIO DECREASED [None]
  - DUODENAL ULCER [None]
  - IRON DEFICIENCY [None]
  - CONFUSIONAL STATE [None]
  - ARRHYTHMIA [None]
  - HYPOTENSION [None]
  - MITRAL VALVE INCOMPETENCE [None]
  - TACHYCARDIA [None]
  - VOMITING [None]
  - PETECHIAE [None]
  - DUODENITIS [None]
  - DILATATION ATRIAL [None]
